FAERS Safety Report 8798739 (Version 1)
Quarter: 2012Q4

REPORT INFORMATION
  Report Type: 
  Country: FI (occurrence: FI)
  Receive Date: 20120920
  Receipt Date: 20120920
  Transmission Date: 20130627
  Serious: Yes (Death)
  Sender: FDA-Public Use
  Company Number: PHHY2012FI080814

PATIENT
  Age: 53 Year
  Sex: Female

DRUGS (5)
  1. CLOZAPINE [Suspect]
     Indication: PSYCHOTIC DISORDER
     Dosage: 200 mg, UNK
  2. CHLORPROMAZINE [Concomitant]
  3. DOXEPIN [Concomitant]
  4. PROPRANOLOL [Concomitant]
  5. OLANZAPINE [Concomitant]

REACTIONS (2)
  - Agranulocytosis [Fatal]
  - Infection [Fatal]
